FAERS Safety Report 8783006 (Version 1)
Quarter: 2012Q4

REPORT INFORMATION
  Report Type: 
  Country: DE (occurrence: DE)
  Receive Date: 20120913
  Receipt Date: 20120913
  Transmission Date: 20130627
  Serious: No
  Sender: FDA-Public Use
  Company Number: DE-JNJFOC-20120902091

PATIENT
  Sex: Female

DRUGS (1)
  1. REMICADE [Suspect]
     Indication: PSORIATIC ARTHROPATHY
     Dosage: The patient received ninth infusion on 31-AUG-2012
     Route: 042
     Dates: start: 20120831

REACTIONS (1)
  - Antinuclear antibody increased [Not Recovered/Not Resolved]
